FAERS Safety Report 19804609 (Version 1)
Quarter: 2021Q3

REPORT INFORMATION
  Report Type: Spontaneous
  Country: FR (occurrence: FR)
  Receive Date: 20210908
  Receipt Date: 20210908
  Transmission Date: 20211014
  Serious: Yes (Hospitalization, Other)
  Sender: FDA-Public Use
  Company Number: FR-MYLANLABS-2021M1058658

PATIENT
  Age: 50 Year
  Sex: Female
  Weight: 102.8 kg

DRUGS (7)
  1. ACUPAN [Concomitant]
     Active Substance: NEFOPAM HYDROCHLORIDE
     Dosage: 6 AMPOULES PER DAY
  2. PLAQUENIL                          /00072602/ [Suspect]
     Active Substance: HYDROXYCHLOROQUINE DIPHOSPHATE
     Indication: ARTHRALGIA
     Dosage: 2 DOSAGE FORM, QD (2 DF, QD)
     Dates: start: 20150724, end: 20150820
  3. PLAQUENIL                          /00072602/ [Suspect]
     Active Substance: HYDROXYCHLOROQUINE DIPHOSPHATE
     Indication: ARTHRITIS
     Dosage: 2 DOSAGE FORM, QD (2 DF, QD)
     Dates: start: 201508, end: 20150903
  4. LEVOTHYROX [Concomitant]
     Active Substance: LEVOTHYROXINE
     Indication: THYROID DISORDER
     Dosage: 125 PICOGRAM
  5. METHOTREXATE. [Suspect]
     Active Substance: METHOTREXATE
     Dosage: 15 MILLIGRAM, QW (15 MG, QW)
     Dates: start: 2016, end: 2017
  6. METHOTREXATE. [Suspect]
     Active Substance: METHOTREXATE
     Indication: HYPERTENSION
     Dosage: 5 MILLIGRAM, QW (5 MG, QW)
  7. METHOTREXATE. [Suspect]
     Active Substance: METHOTREXATE
     Dosage: 10 MILLIGRAM, QW (10 MG, QW)
     Dates: start: 201710

REACTIONS (16)
  - Rash [Unknown]
  - Rash pruritic [Unknown]
  - Skin exfoliation [Unknown]
  - Toxic skin eruption [Unknown]
  - Pyrexia [Recovered/Resolved]
  - Diffuse alopecia [Unknown]
  - Rash pustular [Unknown]
  - Epidermal necrosis [Unknown]
  - Eosinophil count increased [Unknown]
  - Pustular psoriasis [Unknown]
  - Cholestasis [Unknown]
  - Dyspnoea [Recovering/Resolving]
  - Cell death [Unknown]
  - Acute generalised exanthematous pustulosis [Unknown]
  - Pallor [Unknown]
  - Anxiety [Unknown]

NARRATIVE: CASE EVENT DATE: 2015
